FAERS Safety Report 8559838-1 (Version None)
Quarter: 2012Q3

REPORT INFORMATION
  Report Type: 
  Country: None (occurrence: None)
  Receive Date: 20120727
  Receipt Date: 20120727
  Transmission Date: 20120928
  Serious: Yes (Hospitalization)
  Sender: FDA-Public Use
  Company Number: None

PATIENT
  Weight: 109 kg

DRUGS (2)
  1. TAXOL [Suspect]
     Dosage: 94MG
     Dates: start: 20120719
  2. CISPLATIN [Suspect]
     Dosage: 47 MG
     Dates: start: 20120719

REACTIONS (3)
  - NAUSEA [None]
  - REFUSAL OF TREATMENT BY PATIENT [None]
  - VOMITING [None]
